FAERS Safety Report 20685850 (Version 1)
Quarter: 2022Q2

REPORT INFORMATION
  Report Type: Report from Study
  Country: US (occurrence: US)
  Receive Date: 20220407
  Receipt Date: 20220407
  Transmission Date: 20220721
  Serious: Yes (Hospitalization)
  Sender: FDA-Public Use
  Company Number: US-TEVA-2022-US-2024104

PATIENT
  Age: 18 Year
  Sex: Female
  Weight: 57.7 kg

DRUGS (8)
  1. TOPOTECAN [Suspect]
     Active Substance: TOPOTECAN HYDROCHLORIDE
     Indication: Chordoma
     Route: 041
     Dates: start: 20210125, end: 20211206
  2. CYCLOPHOSPHAMIDE [Suspect]
     Active Substance: CYCLOPHOSPHAMIDE
     Indication: Chordoma
     Dosage: (DAYS 1-5 OF 21 DAY CYCLE),
     Route: 041
     Dates: start: 20210125, end: 20211206
  3. PALBOCICLIB [Suspect]
     Active Substance: PALBOCICLIB
     Indication: Chordoma
     Dosage: (DAYS 1-14 OF 21 DAY CYCLE)
     Route: 048
     Dates: start: 20210125, end: 20211206
  4. GABAPENTIN [Concomitant]
     Active Substance: GABAPENTIN
     Dates: start: 20201201
  5. MAGNESIUM [Concomitant]
     Active Substance: MAGNESIUM
     Dates: start: 20201201
  6. OXYCODONE [Concomitant]
     Active Substance: OXYCODONE
     Dates: start: 20211101
  7. POLYETHYLENE GLYCOL [Concomitant]
     Active Substance: POLYETHYLENE GLYCOL
     Dates: start: 20201201
  8. SULFAMETHOXAZOLE\TRIMETHOPRIM [Concomitant]
     Active Substance: SULFAMETHOXAZOLE\TRIMETHOPRIM
     Route: 065

REACTIONS (1)
  - Epistaxis [Recovered/Resolved]

NARRATIVE: CASE EVENT DATE: 20211123
